FAERS Safety Report 8188906-1 (Version None)
Quarter: 2012Q1

REPORT INFORMATION
  Report Type: 
  Country: None (occurrence: None)
  Receive Date: 20120306
  Receipt Date: 20120301
  Transmission Date: 20120608
  Serious: Yes (Other)
  Sender: FDA-Public Use
  Company Number: GB-MERCK-1203GBR00012

PATIENT
  Age: 7 Year
  Sex: Male

DRUGS (2)
  1. COZAAR [Concomitant]
     Route: 048
     Dates: end: 20120105
  2. COZAAR [Suspect]
     Indication: HYPERTENSION
     Route: 048
     Dates: start: 20120105

REACTIONS (3)
  - HENOCH-SCHONLEIN PURPURA [None]
  - PRODUCT SUBSTITUTION ISSUE [None]
  - PURPURA [None]
